FAERS Safety Report 11050953 (Version 1)
Quarter: 2015Q2

REPORT INFORMATION
  Report Type: Spontaneous
  Country: IE (occurrence: IE)
  Receive Date: 20150421
  Receipt Date: 20150421
  Transmission Date: 20150821
  Serious: Yes (Hospitalization)
  Sender: FDA-Public Use
  Company Number: IE-TEVA-556323ISR

PATIENT
  Age: 42 Year
  Sex: Male

DRUGS (6)
  1. ETOPOSIDE. [Suspect]
     Active Substance: ETOPOSIDE
     Indication: GERM CELL CANCER METASTATIC
     Dosage: 50% OF STANDARD DOSE
     Route: 065
  2. PREDNISOLONE. [Concomitant]
     Active Substance: PREDNISOLONE
     Indication: IMMUNOSUPPRESSANT DRUG THERAPY
     Route: 065
  3. CISPLATIN. [Suspect]
     Active Substance: CISPLATIN
     Indication: GERM CELL CANCER METASTATIC
     Dosage: 20MG/M2 ON D1-5; REDUCED TO 50% OF STANDARD DOSE FOR THIRD CYCLE
     Route: 065
  4. ETOPOSIDE. [Suspect]
     Active Substance: ETOPOSIDE
     Indication: GERM CELL CANCER METASTATIC
     Dosage: 80MG/M2 ON D1-5 (80% OF STANDARD DOSE); REDUCED TO 50% OF STANDARD DOSE FOR THIRD CYCLE
     Route: 065
  5. TACROLIMUS. [Concomitant]
     Active Substance: TACROLIMUS
     Indication: IMMUNOSUPPRESSANT DRUG THERAPY
     Route: 065
  6. CISPLATIN. [Suspect]
     Active Substance: CISPLATIN
     Indication: GERM CELL CANCER METASTATIC
     Dosage: 50% OF STANDARD DOSE
     Route: 065

REACTIONS (6)
  - Neutropenic sepsis [Unknown]
  - Enterococcal infection [Unknown]
  - Ulcer [Unknown]
  - Bone marrow failure [Unknown]
  - Acute kidney injury [Unknown]
  - Pancytopenia [Unknown]
